FAERS Safety Report 4900668-7 (Version None)
Quarter: 2006Q1

REPORT INFORMATION
  Report Type: 
  Country: None (occurrence: None)
  Receive Date: 20060203
  Receipt Date: 20060120
  Transmission Date: 20060701
  Serious: Yes (Hospitalization)
  Sender: FDA-Public Use
  Company Number: JP-JNJFOC-20060102978

PATIENT
  Age: 57 Year
  Sex: Male

DRUGS (7)
  1. DUROTEP [Suspect]
     Indication: CANCER PAIN
     Route: 062
  2. PRAVASTATIN SODIUM [Concomitant]
     Route: 048
  3. CANDESARTAN [Concomitant]
     Route: 048
  4. LANSOPRAZOLE [Concomitant]
     Route: 048
  5. ALTACALCIDOL [Concomitant]
     Route: 048
  6. WARFARIN POTASSIUM [Concomitant]
     Route: 048
  7. PREDNISOLONE [Concomitant]
     Route: 048

REACTIONS (4)
  - GLOMERULONEPHRITIS [None]
  - LUNG NEOPLASM MALIGNANT [None]
  - MALAISE [None]
  - NAUSEA [None]
